FAERS Safety Report 10609881 (Version 1)
Quarter: 2014Q4

REPORT INFORMATION
  Report Type: Spontaneous
  Country: US (occurrence: None)
  Receive Date: 20141124
  Receipt Date: 20141124
  Transmission Date: 20150529
  Serious: Yes (Other)
  Sender: FDA-Public Use
  Company Number: PR 2119

PATIENT
  Age: 53 Year
  Sex: Male

DRUGS (3)
  1. TIMOLOL MALEATE. [Concomitant]
     Active Substance: TIMOLOL MALEATE
  2. DORZOLAMIDE HYDROCHLORIDE. [Concomitant]
     Active Substance: DORZOLAMIDE HYDROCHLORIDE
  3. ZIOPTAN [Suspect]
     Active Substance: TAFLUPROST
     Indication: GLAUCOMA
     Dosage: BOTH EYES.
     Route: 047
     Dates: start: 20140624, end: 20140625

REACTIONS (7)
  - Headache [None]
  - Blindness [None]
  - Eye swelling [None]
  - Photophobia [None]
  - Impaired work ability [None]
  - Eye pain [None]
  - Blindness transient [None]

NARRATIVE: CASE EVENT DATE: 20140625
